FAERS Safety Report 21177201 (Version 1)
Quarter: 2022Q3

REPORT INFORMATION
  Report Type: Spontaneous
  Country: IT (occurrence: IT)
  Receive Date: 20220805
  Receipt Date: 20220805
  Transmission Date: 20221027
  Serious: Yes (Other)
  Sender: FDA-Public Use
  Company Number: None

PATIENT
  Age: 56 Year
  Sex: Male
  Weight: 80 kg

DRUGS (3)
  1. EMTRICITABINE\TENOFOVIR DISOPROXIL [Suspect]
     Active Substance: EMTRICITABINE\TENOFOVIR DISOPROXIL
     Indication: HIV test positive
     Dosage: EMTRICITABINE + TENOFOVIR ALAFENAMIDE , UNIT DOSE : 600 MG , THERAPY END DATE : ASKU
     Dates: start: 20220708
  2. LAMIVUDINE [Suspect]
     Active Substance: LAMIVUDINE
     Indication: HIV test positive
     Dosage: LAMIVUDINA , THERAPY END DATE : NASK , UNIT DOSE : 300 MG ,ADDITIONAL INFORMATION :LAMIVUDINA IN ASS
     Dates: start: 20220708
  3. ABACAVIR [Suspect]
     Active Substance: ABACAVIR
     Indication: HIV test positive
     Dosage: ABACAVIR + ABACAVIR CLORIDRATO , UNIT DOSE : 600 MG , THERAPY END DATE : NASK , ADDITIONAL INFORMATI
     Dates: start: 20200111

REACTIONS (3)
  - Hallucination [Recovering/Resolving]
  - Nightmare [Recovering/Resolving]
  - Insomnia [Recovering/Resolving]

NARRATIVE: CASE EVENT DATE: 20220520
